FAERS Safety Report 10037559 (Version 1)
Quarter: 2014Q1

REPORT INFORMATION
  Report Type: Spontaneous
  Country: IR (occurrence: None)
  Receive Date: 20140324
  Receipt Date: 20140324
  Transmission Date: 20141002
  Serious: Yes (Hospitalization)
  Sender: FDA-Public Use
  Company Number: CLOZ20140009

PATIENT
  Age: 27 Year
  Sex: Male

DRUGS (3)
  1. CLONAZEPAM [Suspect]
     Indication: PRODUCT USED FOR UNKNOWN INDICATION
     Route: 048
  2. CLONIDINE HCL [Suspect]
     Indication: PRODUCT USED FOR UNKNOWN INDICATION
     Route: 048
  3. ALPRAZOLAM IR TABLETS [Suspect]
     Indication: PRODUCT USED FOR UNKNOWN INDICATION
     Dosage: 20 IN 1 DAY
     Route: 048

REACTIONS (9)
  - Respiratory acidosis [None]
  - Metabolic alkalosis [None]
  - Electrocardiogram QT prolonged [None]
  - Loss of consciousness [None]
  - Agitation [None]
  - Electrocardiogram QRS complex prolonged [None]
  - Drug screen positive [None]
  - Bradycardia [None]
  - Hallucinations, mixed [None]
